FAERS Safety Report 10373063 (Version 2)
Quarter: 2014Q3

REPORT INFORMATION
  Report Type: Spontaneous
  Country: JP (occurrence: JP)
  Receive Date: 20140808
  Receipt Date: 20140902
  Transmission Date: 20150326
  Serious: Yes (Hospitalization, Other)
  Sender: FDA-Public Use
  Company Number: JP-PFIZER INC-2014219112

PATIENT
  Age: 26 Year
  Sex: Male

DRUGS (2)
  1. CANDESARTAN CILEXETIL. [Suspect]
     Active Substance: CANDESARTAN CILEXETIL
     Dosage: 724 MG, SINGLE
     Route: 048
  2. AMLODIPINE BESILATE [Suspect]
     Active Substance: AMLODIPINE BESYLATE
     Dosage: 993 MG, SINGLE
     Route: 048

REACTIONS (4)
  - Intentional overdose [Unknown]
  - Shock [Recovered/Resolved]
  - Clonic convulsion [Unknown]
  - Suicide attempt [Unknown]
